FAERS Safety Report 20507001 (Version 2)
Quarter: 2023Q1

REPORT INFORMATION
  Report Type: Spontaneous
  Country: US (occurrence: US)
  Receive Date: 20220223
  Receipt Date: 20230210
  Transmission Date: 20230418
  Serious: Yes (Hospitalization)
  Sender: FDA-Public Use
  Company Number: US-VERTEX PHARMACEUTICALS-2022-003140

PATIENT
  Age: 4 Year
  Sex: Male
  Weight: 12.3 kg

DRUGS (6)
  1. ORKAMBI [Suspect]
     Active Substance: IVACAFTOR\LUMACAFTOR
     Indication: Cystic fibrosis
     Dosage: UNK
     Route: 048
  2. RELIZORB [Concomitant]
     Indication: Malnutrition
     Dosage: CARTRIDGES TRYING TO MAXIMIZE ABSORPTION
  3. PERIACTIN [Concomitant]
     Active Substance: CYPROHEPTADINE HYDROCHLORIDE
     Indication: Decreased appetite
  4. NEXIUM [Concomitant]
     Active Substance: ESOMEPRAZOLE MAGNESIUM
     Indication: Asthma
  5. FLOVENT [Concomitant]
     Active Substance: FLUTICASONE PROPIONATE
     Indication: Asthma
  6. RHINOCORT [Concomitant]
     Active Substance: BUDESONIDE
     Indication: Obstructive sleep apnoea syndrome

REACTIONS (12)
  - Liver function test increased [Not Recovered/Not Resolved]
  - Infective pulmonary exacerbation of cystic fibrosis [Unknown]
  - Pancreatic failure [Unknown]
  - Malnutrition [Unknown]
  - Hospitalisation [Unknown]
  - Bronchiectasis [Unknown]
  - COVID-19 [Unknown]
  - Staphylococcal infection [Unknown]
  - Pleural effusion [Unknown]
  - Small airways disease [Unknown]
  - Weight gain poor [Unknown]
  - Viral upper respiratory tract infection [Unknown]

NARRATIVE: CASE EVENT DATE: 20220101
